FAERS Safety Report 6661924-8 (Version None)
Quarter: 2010Q1

REPORT INFORMATION
  Report Type: 
  Country: None (occurrence: None)
  Receive Date: 20100331
  Receipt Date: 20091116
  Transmission Date: 20100710
  Serious: Yes (Hospitalization)
  Sender: FDA-Public Use
  Company Number: US-BRISTOL-MYERS SQUIBB COMPANY-14810121

PATIENT
  Age: 85 Year
  Sex: Male

DRUGS (4)
  1. ERBITUX [Suspect]
     Indication: HEAD AND NECK CANCER
     Route: 042
     Dates: start: 20090917
  2. BENADRYL [Concomitant]
     Indication: PREMEDICATION
  3. DECADRON [Concomitant]
     Indication: PREMEDICATION
  4. TYLENOL-500 [Concomitant]
     Indication: PREMEDICATION

REACTIONS (4)
  - FEELING ABNORMAL [None]
  - HYPOTENSION [None]
  - PULSE ABSENT [None]
  - RESPIRATORY ARREST [None]
